FAERS Safety Report 8299407-4 (Version None)
Quarter: 2012Q2

REPORT INFORMATION
  Report Type: 
  Country: None (occurrence: None)
  Receive Date: 20120419
  Receipt Date: 20120328
  Transmission Date: 20120825
  Serious: No
  Sender: FDA-Public Use
  Company Number: US-BAYER-2012-030688

PATIENT
  Age: 56 Year
  Sex: Female

DRUGS (1)
  1. CLIMARA [Suspect]

REACTIONS (1)
  - DRUG INEFFECTIVE [None]
